FAERS Safety Report 13512365 (Version 1)
Quarter: 2017Q2

REPORT INFORMATION
  Report Type: Spontaneous
  Country: US (occurrence: US)
  Receive Date: 20170504
  Receipt Date: 20170504
  Transmission Date: 20170830
  Serious: No
  Sender: FDA-Public Use
  Company Number: US-WARNER CHILCOTT-2015-001973

PATIENT
  Age: 56 Year
  Sex: Female

DRUGS (14)
  1. DILAUDID [Concomitant]
     Active Substance: HYDROMORPHONE HYDROCHLORIDE
     Dosage: UNK, PRN
     Route: 054
  2. FEMRING [Suspect]
     Active Substance: ESTRADIOL ACETATE
     Indication: MENOPAUSAL SYMPTOMS
     Dosage: USES 3 RINGS AT ONCE, EVERY 1 MONTH
     Route: 067
  3. FEMRING [Suspect]
     Active Substance: ESTRADIOL ACETATE
     Indication: HOT FLUSH
     Dosage: USES 3 RINGS AT ONCE, EVERY 3 MONTHS
     Route: 067
  4. FEMRING [Suspect]
     Active Substance: ESTRADIOL ACETATE
     Indication: BLOOD OESTROGEN DECREASED
     Dosage: USES 2 RINGS AT ONCE, EVERY 3 MONTHS
     Route: 067
  5. XANAX [Concomitant]
     Active Substance: ALPRAZOLAM
     Dosage: 1 MG, UNKNOWN
     Route: 065
  6. GAMUNEX [Concomitant]
     Active Substance: HUMAN IMMUNOGLOBULIN G
     Dosage: 2.5 G, UNK
  7. ZANTAC [Concomitant]
     Active Substance: RANITIDINE HYDROCHLORIDE
     Dosage: 150 MG, TID
     Route: 048
  8. SYNTHROID [Concomitant]
     Active Substance: LEVOTHYROXINE SODIUM
     Dosage: 150 MCG, UNKNOWN
     Route: 065
  9. FOLIC ACID. [Concomitant]
     Active Substance: FOLIC ACID
     Dosage: 1 MG, UNKNOWN
     Route: 065
  10. PHENERGAN [Concomitant]
     Active Substance: PROMETHAZINE HYDROCHLORIDE
     Dosage: UNK, PRN
     Route: 054
  11. ESTRADIOL. [Concomitant]
     Active Substance: ESTRADIOL
     Dosage: UNK, UNKNOWN
     Route: 062
  12. MUCINEX [Concomitant]
     Active Substance: GUAIFENESIN
     Dosage: 600 MG, QD
     Route: 048
  13. TESTOSTERONE. [Concomitant]
     Active Substance: TESTOSTERONE
     Dosage: UNK UNK, UNKNOWN
     Route: 065
  14. T3 [Concomitant]
     Active Substance: LIOTHYRONINE SODIUM
     Dosage: 5 MICROG-DOSE, QD

REACTIONS (6)
  - Fungal infection [Unknown]
  - Drug prescribing error [Unknown]
  - Drug ineffective [Not Recovered/Not Resolved]
  - Menopausal symptoms [Not Recovered/Not Resolved]
  - Hot flush [Not Recovered/Not Resolved]
  - Drug administration error [Unknown]

NARRATIVE: CASE EVENT DATE: 201508
